FAERS Safety Report 16479996 (Version 1)
Quarter: 2019Q2

REPORT INFORMATION
  Report Type: Spontaneous
  Country: ES (occurrence: ES)
  Receive Date: 20190626
  Receipt Date: 20190626
  Transmission Date: 20190711
  Serious: Yes (Other)
  Sender: FDA-Public Use
  Company Number: PHHY2019ES146550

PATIENT
  Age: 13 Year
  Sex: Male

DRUGS (2)
  1. BUDESONIDA ALDO UNION [Concomitant]
     Indication: PRODUCT USED FOR UNKNOWN INDICATION
     Dosage: UNK
     Route: 065
  2. AMOXICILLIN. [Suspect]
     Active Substance: AMOXICILLIN
     Indication: SINUSITIS
     Dosage: 500 MG, Q8H
     Route: 048
     Dates: start: 20180828, end: 20180903

REACTIONS (4)
  - Arthritis [Recovered/Resolved]
  - Serum sickness [Recovered/Resolved]
  - Rash pruritic [Recovered/Resolved]
  - Arthralgia [Recovered/Resolved]

NARRATIVE: CASE EVENT DATE: 20180903
